FAERS Safety Report 7781034-6 (Version None)
Quarter: 2011Q3

REPORT INFORMATION
  Report Type: 
  Country: None (occurrence: None)
  Receive Date: 20110923
  Receipt Date: 20110908
  Transmission Date: 20111222
  Serious: Yes (Death, Disabling)
  Sender: FDA-Public Use
  Company Number: GB-ACCORD-009349

PATIENT
  Age: 49 Year
  Weight: 75 kg

DRUGS (6)
  1. BEVACIZUMAB (BEVACIZUMAB) [Concomitant]
  2. DEXAMETHASONE [Concomitant]
  3. AVASTIN [Suspect]
     Indication: BREAST CANCER METASTATIC
     Dosage: 1000.00-MG-1.00 TIMES/ INTRAVENOUS (NOT OTHERWISE SPECIFIED)
     Route: 042
     Dates: start: 20110106, end: 20110211
  4. CAPECITABINE [Suspect]
     Indication: BREAST CANCER METASTATIC
     Dosage: 2300.00-MG
     Route: 048
     Dates: start: 20100317, end: 20110428
  5. DOCETAXEL [Suspect]
     Indication: BREAST CANCER METASTATIC
     Dosage: 180.00-MG-1.00 TIMES/ INTRAVENOUS (NOT OTHERWISE SPECIFIED)
     Route: 042
     Dates: start: 20101216, end: 20110211
  6. LANSOPRAZOLE [Concomitant]

REACTIONS (3)
  - PALMAR-PLANTAR ERYTHRODYSAESTHESIA SYNDROME [None]
  - NEOPLASM PROGRESSION [None]
  - BREAST CANCER METASTATIC [None]
